FAERS Safety Report 9102690 (Version 2)
Quarter: 2013Q2

REPORT INFORMATION
  Report Type: Spontaneous
  Country: US (occurrence: US)
  Receive Date: 20130220
  Receipt Date: 20130603
  Transmission Date: 20140414
  Serious: Yes (Hospitalization)
  Sender: FDA-Public Use
  Company Number: US-B.I. PHARMACEUTICALS,INC./RIDGEFIELD-2013-BI-03932BP

PATIENT
  Age: 73 Year
  Sex: Male
  Weight: 88 kg

DRUGS (6)
  1. PRADAXA [Suspect]
     Indication: ATRIAL FIBRILLATION
     Dates: start: 20110301, end: 20110304
  2. CRESTOR [Concomitant]
     Dates: start: 2003
  3. LEVOXYL [Concomitant]
     Dates: start: 2003
  4. METFORMIN [Concomitant]
     Dates: start: 2002
  5. NEXIUM [Concomitant]
     Dates: start: 2003
  6. AMIODARONE [Concomitant]
     Dates: start: 2008

REACTIONS (1)
  - Gastrointestinal haemorrhage [Unknown]
